FAERS Safety Report 7647197-8 (Version None)
Quarter: 2011Q3

REPORT INFORMATION
  Report Type: 
  Country: None (occurrence: None)
  Receive Date: 20110801
  Receipt Date: 20110719
  Transmission Date: 20111222
  Serious: Yes (Hospitalization, Other)
  Sender: FDA-Public Use
  Company Number: US-ELI_LILLY_AND_COMPANY-US201107000735

PATIENT
  Sex: Female
  Weight: 101 kg

DRUGS (1)
  1. CYMBALTA [Suspect]
     Indication: PAIN
     Dosage: 90 MG, QD
     Route: 048
     Dates: start: 20080820

REACTIONS (4)
  - FEMUR FRACTURE [None]
  - ROAD TRAFFIC ACCIDENT [None]
  - LIMB CRUSHING INJURY [None]
  - MUSCLE TWITCHING [None]
